FAERS Safety Report 16065745 (Version 2)
Quarter: 2019Q2

REPORT INFORMATION
  Report Type: Report from Study
  Country: AU (occurrence: AU)
  Receive Date: 20190313
  Receipt Date: 20190423
  Transmission Date: 20190711
  Serious: Yes (Hospitalization)
  Sender: FDA-Public Use
  Company Number: AU-ROCHE-2277197

PATIENT

DRUGS (2)
  1. ZELBORAF [Suspect]
     Active Substance: VEMURAFENIB
     Indication: PRODUCT USED FOR UNKNOWN INDICATION
     Route: 065
  2. COTELLIC [Suspect]
     Active Substance: COBIMETINIB
     Indication: PRODUCT USED FOR UNKNOWN INDICATION
     Route: 065

REACTIONS (4)
  - Rash [Unknown]
  - Swelling face [Unknown]
  - Pyrexia [Unknown]
  - Swelling [Unknown]
